FAERS Safety Report 24939740 (Version 2)
Quarter: 2025Q2

REPORT INFORMATION
  Report Type: Report from Study
  Country: DE (occurrence: DE)
  Receive Date: 20250207
  Receipt Date: 20250509
  Transmission Date: 20250717
  Serious: Yes (Hospitalization, Other)
  Sender: EMD SERONO INC
  Company Number: DE-Merck Healthcare KGaA-2025005180

PATIENT
  Age: 54 Year
  Sex: Male

DRUGS (2)
  1. REBIF [Suspect]
     Active Substance: INTERFERON BETA-1A
     Indication: Multiple sclerosis
     Dates: start: 2015
  2. REBIF [Suspect]
     Active Substance: INTERFERON BETA-1A

REACTIONS (8)
  - Cerebrovascular accident [Unknown]
  - Coma [Recovered/Resolved]
  - Fall [Unknown]
  - Multiple sclerosis relapse [Recovered/Resolved]
  - Visual impairment [Unknown]
  - Cataract [Unknown]
  - Temperature intolerance [Unknown]
  - Gait disturbance [Unknown]

NARRATIVE: CASE EVENT DATE: 20240101
